FAERS Safety Report 6938809-2 (Version None)
Quarter: 2010Q3

REPORT INFORMATION
  Report Type: 
  Country: None (occurrence: None)
  Receive Date: 20100824
  Receipt Date: 20100817
  Transmission Date: 20110219
  Serious: Yes (Hospitalization)
  Sender: FDA-Public Use
  Company Number: FR-ROCHE-722263

PATIENT
  Age: 49 Year
  Sex: Female

DRUGS (2)
  1. AVASTIN [Suspect]
     Dosage: CYCLES 3, INJECTIONS ON DAY 1, 8 AND 15
     Route: 065
     Dates: start: 20100414, end: 20100624
  2. TAXOL [Suspect]
     Route: 065
     Dates: start: 20100414

REACTIONS (1)
  - LUNG DISORDER [None]
